FAERS Safety Report 5521799-7 (Version None)
Quarter: 2007Q4

REPORT INFORMATION
  Report Type: 
  Country: None (occurrence: None)
  Receive Date: 20071120
  Receipt Date: 20071109
  Transmission Date: 20080405
  Serious: Yes (Other)
  Sender: FDA-Public Use
  Company Number: US-JNJFOC-20071104538

PATIENT
  Sex: Female
  Weight: 58.97 kg

DRUGS (3)
  1. DURAGESIC-100 [Suspect]
     Route: 062
  2. DURAGESIC-100 [Suspect]
     Indication: PAIN
     Route: 062
  3. CALAN [Concomitant]
     Indication: HYPERTENSION
     Route: 048

REACTIONS (8)
  - EATING DISORDER [None]
  - FEELING COLD [None]
  - FEELING HOT [None]
  - NERVOUSNESS [None]
  - NIGHT SWEATS [None]
  - PAIN [None]
  - PNEUMONIA [None]
  - WEIGHT DECREASED [None]
